FAERS Safety Report 8813466 (Version 1)
Quarter: 2012Q4

REPORT INFORMATION
  Report Type: 
  Country: US (occurrence: US)
  Receive Date: 20120927
  Receipt Date: 20120927
  Transmission Date: 20130627
  Serious: No
  Sender: FDA-Public Use
  Company Number: US-AMGEN-USASP2012045233

PATIENT
  Age: 78 Year
  Sex: Female

DRUGS (5)
  1. PROLIA [Suspect]
     Indication: BONE LOSS
     Dosage: UNK UNK, q6mo
  2. SYNTHROID [Concomitant]
     Dosage: UNK
  3. FEMARA [Concomitant]
  4. BYSTOLIC [Concomitant]
  5. AMLODIPINE W/HYDROCHLOROTHIAZIDE [Concomitant]

REACTIONS (1)
  - Thyroid gland scan abnormal [Not Recovered/Not Resolved]
